FAERS Safety Report 4345758-5 (Version None)
Quarter: 2004Q2

REPORT INFORMATION
  Report Type: 
  Country: None (occurrence: None)
  Receive Date: 20040421
  Receipt Date: 20040407
  Transmission Date: 20050107
  Serious: Yes (Other)
  Sender: FDA-Public Use
  Company Number: US072736

PATIENT

DRUGS (1)
  1. ENBREL [Suspect]
     Dosage: SC
     Route: 058

REACTIONS (1)
  - DEMYELINATION [None]
